FAERS Safety Report 4637497-8 (Version None)
Quarter: 2005Q2

REPORT INFORMATION
  Report Type: 
  Country: None (occurrence: None)
  Receive Date: 20050328
  Receipt Date: 20050127
  Transmission Date: 20051028
  Serious: No
  Sender: FDA-Public Use
  Company Number: USA030126725

PATIENT
  Age: 14 Year
  Sex: Male
  Weight: 52 kg

DRUGS (3)
  1. STRATTERA [Suspect]
     Indication: ATTENTION DEFICIT/HYPERACTIVITY DISORDER
     Dosage: 40 MG/2 DAY
     Dates: start: 20030120
  2. CONCERTA [Concomitant]
  3. ZOLOFT [Concomitant]

REACTIONS (5)
  - ANGER [None]
  - DISTURBANCE IN ATTENTION [None]
  - DRUG INEFFECTIVE [None]
  - MOOD SWINGS [None]
  - PRESCRIBED OVERDOSE [None]
